FAERS Safety Report 9254972 (Version 2)
Quarter: 2013Q2

REPORT INFORMATION
  Report Type: Spontaneous
  Country: GB (occurrence: None)
  Receive Date: 20130422
  Receipt Date: 20130426
  Transmission Date: 20140414
  Serious: Yes (Other)
  Sender: FDA-Public Use
  Company Number: AUR-APL-2013-03139

PATIENT
  Age: 27 Year
  Sex: Male
  Weight: 95 kg

DRUGS (2)
  1. RISPERIDONE [Suspect]
     Route: 048
     Dates: start: 20130403, end: 20130405
  2. RISPERIDONE [Suspect]
     Indication: PARANOID PERSONALITY DISORDER
     Route: 048
     Dates: start: 20130403, end: 20130405

REACTIONS (4)
  - Pain [None]
  - Priapism [None]
  - Shock [None]
  - Blood potassium increased [None]
